FAERS Safety Report 17661633 (Version 2)
Quarter: 2021Q1

REPORT INFORMATION
  Report Type: Spontaneous
  Country: PT (occurrence: PT)
  Receive Date: 20200413
  Receipt Date: 20210217
  Transmission Date: 20210419
  Serious: Yes (Hospitalization)
  Sender: FDA-Public Use
  Company Number: PT-UNICHEM PHARMACEUTICALS (USA) INC-UCM202004-000442

PATIENT
  Age: 49 Year
  Sex: Male

DRUGS (5)
  1. ALLOPURINOL. [Suspect]
     Active Substance: ALLOPURINOL
     Indication: OLIGOARTHRITIS
  2. COLCHICINE. [Concomitant]
     Active Substance: COLCHICINE
     Indication: OLIGOARTHRITIS
  3. PREDNISOLONE. [Concomitant]
     Active Substance: PREDNISOLONE
     Indication: OLIGOARTHRITIS
  4. PREDNISOLONE. [Concomitant]
     Active Substance: PREDNISOLONE
     Dosage: 2.5 MG
  5. PREDNISOLONE. [Concomitant]
     Active Substance: PREDNISOLONE
     Dosage: 1MG/KG

REACTIONS (12)
  - Atrioventricular block complete [Recovered/Resolved]
  - Blood creatine phosphokinase increased [Recovered/Resolved]
  - Left atrial enlargement [Recovered/Resolved]
  - Procalcitonin decreased [Recovered/Resolved]
  - Myalgia [Recovered/Resolved]
  - Neutrophilia [Recovered/Resolved]
  - Pyrexia [Recovered/Resolved]
  - C-reactive protein increased [Recovered/Resolved]
  - Syncope [Recovered/Resolved]
  - Myocarditis [Recovered/Resolved]
  - Normochromic normocytic anaemia [Recovered/Resolved]
  - Leukocytosis [Recovered/Resolved]
